FAERS Safety Report 9447594 (Version 1)
Quarter: 2013Q3

REPORT INFORMATION
  Report Type: Spontaneous
  Country: US (occurrence: None)
  Receive Date: 20130807
  Receipt Date: 20130807
  Transmission Date: 20140515
  Serious: Yes (Death)
  Sender: FDA-Public Use
  Company Number: None

PATIENT
  Sex: Female

DRUGS (1)
  1. THALOMID [Suspect]
     Indication: PLASMA CELL MYELOMA
     Dosage: 1 CAP DAILY PO
     Route: 048
     Dates: start: 20130712, end: 20130806

REACTIONS (1)
  - Death [None]
